FAERS Safety Report 20775754 (Version 1)
Quarter: 2022Q2

REPORT INFORMATION
  Report Type: Spontaneous
  Country: US (occurrence: None)
  Receive Date: 20220502
  Receipt Date: 20220502
  Transmission Date: 20220720
  Serious: Yes (Death)
  Sender: FDA-Public Use
  Company Number: None

PATIENT
  Age: 72 Year
  Sex: Male

DRUGS (1)
  1. VALCHLOR [Suspect]
     Active Substance: MECHLORETHAMINE
     Indication: Cutaneous T-cell lymphoma
     Dosage: FREQUENCY : DAILY;?
     Route: 061
     Dates: start: 20160712, end: 20220320

REACTIONS (4)
  - Hypotension [None]
  - Hypercapnia [None]
  - Multiple organ dysfunction syndrome [None]
  - Adult failure to thrive [None]

NARRATIVE: CASE EVENT DATE: 20220320
